FAERS Safety Report 25369781 (Version 2)
Quarter: 2025Q2

REPORT INFORMATION
  Report Type: Spontaneous
  Country: US (occurrence: US)
  Receive Date: 20250528
  Receipt Date: 20250603
  Transmission Date: 20250717
  Serious: No
  Sender: JOHNSON AND JOHNSON
  Company Number: US-JNJFOC-20250529900

PATIENT
  Age: 60 Year
  Sex: Male
  Weight: 108.5 kg

DRUGS (1)
  1. DARZALEX FASPRO [Suspect]
     Active Substance: DARATUMUMAB\HYALURONIDASE-FIHJ
     Indication: Plasma cell myeloma
     Route: 065
     Dates: start: 20250502

REACTIONS (2)
  - Product closure issue [Unknown]
  - Product dose omission issue [Unknown]
